FAERS Safety Report 23754662 (Version 1)
Quarter: 2024Q2

REPORT INFORMATION
  Report Type: Spontaneous
  Country: CN (occurrence: CN)
  Receive Date: 20240418
  Receipt Date: 20240418
  Transmission Date: 20240716
  Serious: Yes (Death)
  Sender: FDA-Public Use
  Company Number: CN-ABBVIE-5720941

PATIENT
  Age: 70 Year
  Sex: Male

DRUGS (4)
  1. VENETOCLAX [Suspect]
     Active Substance: VENETOCLAX
     Indication: Blastic plasmacytoid dendritic cell neoplasia
     Dosage: DAY 1
     Route: 048
     Dates: start: 2022, end: 2022
  2. VENETOCLAX [Suspect]
     Active Substance: VENETOCLAX
     Indication: Blastic plasmacytoid dendritic cell neoplasia
     Dosage: DAY 2-28
     Route: 048
     Dates: start: 2022, end: 2022
  3. AZACITIDINE [Suspect]
     Active Substance: AZACITIDINE
     Indication: Myelofibrosis
     Dosage: D1 7
     Route: 058
     Dates: start: 2022, end: 2022
  4. AMLODIPINE BESYLATE [Concomitant]
     Active Substance: AMLODIPINE BESYLATE
     Indication: Hypertension
     Route: 065

REACTIONS (4)
  - Myelosuppression [Fatal]
  - Off label use [Unknown]
  - Infection [Fatal]
  - Drug ineffective for unapproved indication [Unknown]

NARRATIVE: CASE EVENT DATE: 20220101
